FAERS Safety Report 12209087 (Version 1)
Quarter: 2016Q1

REPORT INFORMATION
  Report Type: Spontaneous
  Country: ZA (occurrence: ZA)
  Receive Date: 20160324
  Receipt Date: 20160324
  Transmission Date: 20160526
  Serious: Yes (Life-Threatening, Hospitalization)
  Sender: FDA-Public Use
  Company Number: ZA-PFIZER INC-2016173904

PATIENT
  Sex: Female

DRUGS (1)
  1. ORELOX [Suspect]
     Active Substance: CEFPODOXIME
     Dosage: 200 MG, 2X/DAY

REACTIONS (3)
  - Malaise [Unknown]
  - Eye colour change [Unknown]
  - Hepatitis [Unknown]
